FAERS Safety Report 6538612-1 (Version None)
Quarter: 2010Q1

REPORT INFORMATION
  Report Type: 
  Country: None (occurrence: None)
  Receive Date: 20100113
  Receipt Date: 20100113
  Transmission Date: 20100710
  Serious: Yes (Hospitalization)
  Sender: FDA-Public Use
  Company Number: None

PATIENT
  Age: 86 Year
  Sex: Male
  Weight: 87.6 kg

DRUGS (1)
  1. RISPERDAL [Suspect]
     Indication: DEMENTIA
     Dosage: THREE TIMES DAILY PO
     Route: 048

REACTIONS (8)
  - ASTHENIA [None]
  - DROOLING [None]
  - FALL [None]
  - FLAT AFFECT [None]
  - GAIT DISTURBANCE [None]
  - MENTAL STATUS CHANGES [None]
  - PARKINSON'S DISEASE [None]
  - URINARY INCONTINENCE [None]
